FAERS Safety Report 7610832-4 (Version None)
Quarter: 2011Q3

REPORT INFORMATION
  Report Type: 
  Country: None (occurrence: None)
  Receive Date: 20110707
  Receipt Date: 20110127
  Transmission Date: 20111222
  Serious: Yes (Hospitalization, Disabling)
  Sender: FDA-Public Use
  Company Number: B0730322A

PATIENT
  Age: 34 Year
  Sex: Female

DRUGS (2)
  1. SUMATRIPTAN SUCCINATE [Suspect]
     Indication: HEADACHE
     Dosage: 20 MG SINGLE DOSE
  2. METOCLOPRAMIDE [Concomitant]

REACTIONS (6)
  - LOSS OF CONSCIOUSNESS [None]
  - VISION BLURRED [None]
  - BASILAR ARTERY OCCLUSION [None]
  - BRAIN STEM INFARCTION [None]
  - VOMITING [None]
  - RESPIRATORY DEPRESSION [None]
